FAERS Safety Report 17072974 (Version 2)
Quarter: 2019Q4

REPORT INFORMATION
  Report Type: Report from Study
  Country: ES (occurrence: ES)
  Receive Date: 20191125
  Receipt Date: 20191203
  Transmission Date: 20200122
  Serious: Yes (Other)
  Sender: FDA-Public Use
  Company Number: ES-SAMSUNG BIOEPIS-SB-2019-28624

PATIENT
  Age: 67 Year
  Sex: Female

DRUGS (2)
  1. BENEPALI [Suspect]
     Active Substance: ETANERCEPT
     Indication: RHEUMATOID ARTHRITIS
     Dosage: 4 PRE-FILLED SYRINGES
     Route: 058
     Dates: start: 20170309
  2. BENEPALI [Suspect]
     Active Substance: ETANERCEPT
     Route: 065

REACTIONS (2)
  - Pneumonia necrotising [Recovered/Resolved]
  - Product use issue [Unknown]

NARRATIVE: CASE EVENT DATE: 20170609
